FAERS Safety Report 10254761 (Version 1)
Quarter: 2014Q2

REPORT INFORMATION
  Report Type: Spontaneous
  Country: US (occurrence: None)
  Receive Date: 20140620
  Receipt Date: 20140620
  Transmission Date: 20141212
  Serious: Yes (Hospitalization, Other)
  Sender: FDA-Public Use
  Company Number: None

PATIENT
  Age: 30 Year
  Sex: Female
  Weight: 61.24 kg

DRUGS (1)
  1. NEXPLANON [Suspect]
     Indication: CONTRACEPTION

REACTIONS (4)
  - Emotional distress [None]
  - Hair growth abnormal [None]
  - Oligomenorrhoea [None]
  - Dizziness [None]
